FAERS Safety Report 9695989 (Version 1)
Quarter: 2013Q4

REPORT INFORMATION
  Report Type: Spontaneous
  Country: FR (occurrence: FR)
  Receive Date: 20131119
  Receipt Date: 20131119
  Transmission Date: 20140711
  Serious: Yes (Life-Threatening, Hospitalization)
  Sender: FDA-Public Use
  Company Number: FR-TEVA-445049ISR

PATIENT
  Age: 63 Year
  Sex: Female

DRUGS (14)
  1. OXALIPLATINE TEVA [Suspect]
     Indication: RICHTER^S SYNDROME
     Dosage: 1 COURSE
     Route: 042
     Dates: start: 20130725, end: 20130725
  2. MABTHERA [Suspect]
     Indication: RICHTER^S SYNDROME
     Dosage: 6 COURSES
     Route: 042
     Dates: start: 2005, end: 2006
  3. MABTHERA [Suspect]
     Dosage: 4 COURSES
     Route: 042
     Dates: start: 2009, end: 2009
  4. MABTHERA [Suspect]
     Dosage: 4 COURSES
     Route: 042
     Dates: start: 2010, end: 2010
  5. MABTHERA [Suspect]
     Dosage: 1 COURSE
     Route: 042
     Dates: start: 20130705, end: 20130705
  6. MABTHERA [Suspect]
     Dosage: 1 COURSE
     Route: 042
     Dates: start: 20130725, end: 20130725
  7. LEVACT 2.5 MG/ML POWDER FOR CONCENTRATE [Suspect]
     Indication: RICHTER^S SYNDROME
     Dosage: 1 COURSE
     Route: 042
     Dates: start: 20130705, end: 20130705
  8. DEXAMETHASONE MYLAN [Suspect]
     Indication: RICHTER^S SYNDROME
     Dosage: 1 COURSE
     Route: 042
     Dates: start: 20130725, end: 20130725
  9. CYTARABINE SANDOZ [Suspect]
     Indication: RICHTER^S SYNDROME
     Dosage: 1 COURSE
     Route: 042
     Dates: start: 20130725, end: 20130725
  10. AUGMENTIN [Concomitant]
     Dosage: 3 GRAM DAILY;
     Route: 048
     Dates: start: 20130818
  11. FLAGYL 500 MG, FILM-COATED TABLET [Concomitant]
     Dosage: 3 DOSAGE FORMS DAILY;
     Route: 048
     Dates: start: 20130818, end: 20130828
  12. LYRICA 150 MG, CAPSULE [Concomitant]
     Dosage: 2 DOSAGE FORMS DAILY;
     Route: 048
     Dates: start: 20130818, end: 20130828
  13. ZELITREX 500 MG, COATED TABLET [Concomitant]
     Dosage: 1000 MILLIGRAM DAILY;
     Route: 048
     Dates: start: 20130818
  14. BACTRIM FORTE, TABLET [Concomitant]
     Route: 048
     Dates: start: 20130818

REACTIONS (10)
  - JC virus infection [Unknown]
  - General physical health deterioration [Unknown]
  - Aphasia [Unknown]
  - Dysphagia [Unknown]
  - Confusional state [Unknown]
  - Disorientation [Unknown]
  - Nervous system disorder [Unknown]
  - Convulsion [Unknown]
  - Lymphoma [Unknown]
  - Staphylococcus test [Unknown]
